FAERS Safety Report 14964000 (Version 1)
Quarter: 2018Q2

REPORT INFORMATION
  Report Type: Spontaneous
  Country: KR (occurrence: KR)
  Receive Date: 20180601
  Receipt Date: 20180601
  Transmission Date: 20180711
  Serious: Yes (Death, Hospitalization)
  Sender: FDA-Public Use
  Company Number: KR-GLENMARK PHARMACEUTICALS-2018GMK035816

PATIENT
  Age: 72 Year
  Sex: Male

DRUGS (1)
  1. FLUCONAZOLE. [Suspect]
     Active Substance: FLUCONAZOLE
     Indication: TRICHOSPORON INFECTION
     Dosage: UNK
     Route: 042

REACTIONS (2)
  - Septic shock [Fatal]
  - Drug ineffective for unapproved indication [Fatal]
